FAERS Safety Report 7007006-7 (Version None)
Quarter: 2010Q3

REPORT INFORMATION
  Report Type: 
  Country: None (occurrence: None)
  Receive Date: 20100922
  Receipt Date: 20100907
  Transmission Date: 20110219
  Serious: Yes (Other)
  Sender: FDA-Public Use
  Company Number: US-MYLANLABS-2010S1013742

PATIENT
  Age: 19 Year
  Sex: Female
  Weight: 48.54 kg

DRUGS (1)
  1. DIAZEPAM [Suspect]
     Indication: ANXIETY
     Route: 048
     Dates: start: 20100513, end: 20100621

REACTIONS (9)
  - AGITATION [None]
  - ANXIETY [None]
  - COMPULSIONS [None]
  - DRUG INEFFECTIVE [None]
  - DRUG SCREEN NEGATIVE [None]
  - INTENTIONAL SELF-INJURY [None]
  - PRODUCT QUALITY ISSUE [None]
  - PSYCHOTIC DISORDER [None]
  - SUICIDAL IDEATION [None]
